FAERS Safety Report 21110597 (Version 1)
Quarter: 2022Q3

REPORT INFORMATION
  Report Type: Spontaneous
  Country: US (occurrence: None)
  Receive Date: 20220720
  Receipt Date: 20220720
  Transmission Date: 20221026
  Serious: No
  Sender: FDA-Public Use
  Company Number: None

PATIENT
  Age: 83 Year
  Sex: Female
  Weight: 67.5 kg

DRUGS (25)
  1. PAXLOVID [Suspect]
     Active Substance: NIRMATRELVIR\RITONAVIR
     Indication: COVID-19
     Dosage: OTHER QUANTITY : 3 TABLET(S);?FREQUENCY : TWICE A DAY;?
     Route: 048
     Dates: start: 20220719, end: 20220719
  2. DEVICE [Concomitant]
     Active Substance: DEVICE
  3. GABAPENTIN [Concomitant]
     Active Substance: GABAPENTIN
  4. ALPRAZOLAM [Concomitant]
     Active Substance: ALPRAZOLAM
  5. ATENOLOL [Concomitant]
     Active Substance: ATENOLOL
  6. PROLIA [Concomitant]
     Active Substance: DENOSUMAB
  7. ESTRACE [Concomitant]
     Active Substance: ESTRADIOL
  8. LEVOTHYROXINE [Concomitant]
     Active Substance: LEVOTHYROXINE
  9. OMEPRAZOLE [Concomitant]
     Active Substance: OMEPRAZOLE
  10. PRAVASTATIN [Concomitant]
     Active Substance: PRAVASTATIN
  11. TOLTERODINE [Concomitant]
     Active Substance: TOLTERODINE
  12. VALSARTAN AND HYDROCHLOROTHIAZIDE [Concomitant]
     Active Substance: HYDROCHLOROTHIAZIDE\VALSARTAN
  13. AMLODIPINE [Concomitant]
     Active Substance: AMLODIPINE BESYLATE
  14. NITROFURANTOIN [Concomitant]
     Active Substance: NITROFURANTOIN
  15. CALCIUM\VITAMIN D [Concomitant]
     Active Substance: CALCIUM\VITAMIN D
  16. COLACE [Concomitant]
     Active Substance: DOCUSATE SODIUM
  17. FIBERCON [Concomitant]
     Active Substance: CALCIUM POLYCARBOPHIL
  18. FISH OIL [Concomitant]
     Active Substance: FISH OIL
  19. COENZYME Q10 [Concomitant]
     Active Substance: DIETARY SUPPLEMENT\UBIDECARENONE
  20. PROBIOTICS NOS [Concomitant]
     Active Substance: PROBIOTICS NOS
  21. MELATONIN [Concomitant]
     Active Substance: MELATONIN
  22. DIETARY SUPPLEMENT [Concomitant]
     Active Substance: DIETARY SUPPLEMENT
  23. cranberry pill + vitamin C [Concomitant]
  24. VITAMIN B12 [Concomitant]
     Active Substance: CYANOCOBALAMIN
  25. Previgen [Concomitant]

REACTIONS (2)
  - Abdominal discomfort [None]
  - Taste disorder [None]

NARRATIVE: CASE EVENT DATE: 20220719
